FAERS Safety Report 19430151 (Version 1)
Quarter: 2021Q2

REPORT INFORMATION
  Report Type: Report from Study
  Country: CA (occurrence: CA)
  Receive Date: 20210617
  Receipt Date: 20210617
  Transmission Date: 20210717
  Serious: Yes (Other)
  Sender: FDA-Public Use
  Company Number: CA-GILEAD-2021-0535978

PATIENT
  Age: 37 Year
  Sex: Male

DRUGS (1)
  1. BICTEGRAVIR W/EMTRICITABINE/TENOFOVIR ALAFENAMIDE [Suspect]
     Active Substance: BICTEGRAVIR\EMTRICITABINE\TENOFOVIR ALAFENAMIDE
     Indication: HIV INFECTION
     Dosage: UNK
     Route: 048
     Dates: start: 2019

REACTIONS (4)
  - Diarrhoea [Recovered/Resolved]
  - Drug abuse [Not Recovered/Not Resolved]
  - Alcohol abuse [Not Recovered/Not Resolved]
  - Headache [Recovered/Resolved]
